FAERS Safety Report 19185800 (Version 1)
Quarter: 2021Q2

REPORT INFORMATION
  Report Type: Spontaneous
  Country: GB (occurrence: GB)
  Receive Date: 20210427
  Receipt Date: 20210427
  Transmission Date: 20210717
  Serious: Yes (Congenital Anomaly, Other)
  Sender: FDA-Public Use
  Company Number: GB-CURIUM-200800397

PATIENT
  Sex: Male

DRUGS (1)
  1. SODIUM IODIDE I 131 [Suspect]
     Active Substance: SODIUM IODIDE I-131
     Route: 064

REACTIONS (4)
  - Hypothyroidism [Unknown]
  - Thyroid mass [Recovered/Resolved]
  - Blood thyroid stimulating hormone increased [Recovered/Resolved]
  - Foetal exposure during pregnancy [Recovered/Resolved]
